FAERS Safety Report 20961738 (Version 1)
Quarter: 2022Q2

REPORT INFORMATION
  Report Type: Spontaneous
  Country: US (occurrence: US)
  Receive Date: 20220615
  Receipt Date: 20220615
  Transmission Date: 20220721
  Serious: Yes (Death, Hospitalization)
  Sender: FDA-Public Use
  Company Number: US-MYLANLABS-2022M1044832

PATIENT
  Age: 8 Year
  Sex: Male

DRUGS (6)
  1. PREDNISONE [Suspect]
     Active Substance: PREDNISONE
     Indication: Immunosuppressant drug therapy
     Dosage: UNK
  2. MYCOPHENOLATE MOFETIL [Suspect]
     Active Substance: MYCOPHENOLATE MOFETIL
     Indication: Immunosuppressant drug therapy
     Dosage: UNK
  3. MYCOPHENOLATE MOFETIL [Suspect]
     Active Substance: MYCOPHENOLATE MOFETIL
     Dosage: IMMUNOSUPPRESSION DECREASED
  4. TACROLIMUS [Suspect]
     Active Substance: TACROLIMUS
     Indication: Immunosuppressant drug therapy
     Dosage: UNK
  5. TACROLIMUS [Suspect]
     Active Substance: TACROLIMUS
     Dosage: IMMUNOSUPPRESSION DECREASED
  6. THYMOCYTE IMMUNE GLOBULIN NOS [Suspect]
     Active Substance: THYMOCYTE IMMUNE GLOBULIN NOS
     Indication: Immunosuppressant drug therapy
     Dosage: UNK

REACTIONS (7)
  - Post transplant lymphoproliferative disorder [Fatal]
  - Gastrointestinal haemorrhage [Fatal]
  - Abdominal lymphadenopathy [Fatal]
  - Hyperviscosity syndrome [Unknown]
  - Plasma cell leukaemia [Unknown]
  - Somnolence [Unknown]
  - Tumour lysis syndrome [Unknown]
